FAERS Safety Report 13901971 (Version 1)
Quarter: 2017Q3

REPORT INFORMATION
  Report Type: Spontaneous
  Country: US (occurrence: US)
  Receive Date: 20170824
  Receipt Date: 20170824
  Transmission Date: 20171127
  Serious: No
  Sender: FDA-Public Use
  Company Number: US-ROCHE-1125772

PATIENT
  Sex: Female

DRUGS (11)
  1. HERCEPTIN [Suspect]
     Active Substance: TRASTUZUMAB
     Dosage: PLACE IN 250 CC NS AND INFUSE OVER 60 MINUTES
     Route: 065
     Dates: start: 20010306
  2. HERCEPTIN [Suspect]
     Active Substance: TRASTUZUMAB
     Dosage: PLACE IN 250 CC NS AND INFUSE OVER 60 MINUTES
     Route: 065
     Dates: start: 20010313
  3. NAVELBINE [Concomitant]
     Active Substance: VINORELBINE TARTRATE
     Dosage: PLACE 50 ML OF NS IN SYRINGE, 100 CC NS PRE NAVELBINE, PUSH NAVELBINE OVER 5-8 MINUTES, GIVE 50 CC N
     Route: 065
  4. HERCEPTIN [Suspect]
     Active Substance: TRASTUZUMAB
     Dosage: PLACE IN 250 CC NS AND INFUSE OVER 60 MINUTES
     Route: 065
     Dates: start: 20010108
  5. HERCEPTIN [Suspect]
     Active Substance: TRASTUZUMAB
     Dosage: PLACE IN 250 CC NS AND INFUSE OVER 60 MINUTES
     Route: 065
     Dates: start: 20001221
  6. HERCEPTIN [Suspect]
     Active Substance: TRASTUZUMAB
     Indication: NON-SMALL CELL LUNG CANCER
     Dosage: PLACE IN 250 CC NS AND INFUSE OVER 60 MINUTES
     Route: 065
     Dates: start: 20001212
  7. HERCEPTIN [Suspect]
     Active Substance: TRASTUZUMAB
     Dosage: PLACE IN 250 CC NS AND INFUSE OVER 60 MINUTES
     Route: 065
     Dates: start: 20010102
  8. HERCEPTIN [Suspect]
     Active Substance: TRASTUZUMAB
     Dosage: PLACE IN 250 CC NS AND INFUSE OVER 60 MINUTES
     Route: 065
     Dates: start: 20010116
  9. HERCEPTIN [Suspect]
     Active Substance: TRASTUZUMAB
     Dosage: PLACE IN 250 CC NS AND INFUSE OVER 60 MINUTES
     Route: 065
     Dates: start: 20010123
  10. HERCEPTIN [Suspect]
     Active Substance: TRASTUZUMAB
     Dosage: PLACE IN 250 CC NS AND INFUSE OVER 60 MINUTES
     Route: 065
     Dates: start: 20010130
  11. HERCEPTIN [Suspect]
     Active Substance: TRASTUZUMAB
     Dosage: PLACE IN 250 CC NS AND INFUSE OVER 60 MINUTES
     Route: 065
     Dates: start: 20010227

REACTIONS (2)
  - Insomnia [Unknown]
  - Fatigue [Unknown]
